FAERS Safety Report 17144473 (Version 1)
Quarter: 2019Q4

REPORT INFORMATION
  Report Type: Spontaneous
  Country: US (occurrence: US)
  Receive Date: 20191212
  Receipt Date: 20191212
  Transmission Date: 20200122
  Serious: No
  Sender: FDA-Public Use
  Company Number: US-PFIZER INC-2019535628

PATIENT
  Sex: Female

DRUGS (6)
  1. VYVANSE [Concomitant]
     Active Substance: LISDEXAMFETAMINE DIMESYLATE
     Indication: ATTENTION DEFICIT/HYPERACTIVITY DISORDER
     Dosage: 50 MG, 2X/DAY(TAKES 2 CAPSULES IN THE MORNING BY MOUTH)
     Route: 048
  2. CITRUCEL [Concomitant]
     Active Substance: METHYLCELLULOSE (4000 MPA.S)
     Indication: COLITIS ULCERATIVE
     Dosage: 2 DF, 1X/DAY(2 FIBER CAPLETS IN THE MORNING BY MOUTH)
     Route: 048
  3. L METHYLFOLATE [Concomitant]
     Indication: DEPRESSION
     Dosage: 15 MG, 1X/DAY(1 CAPSULE IN THE MORNING BY MOUTH)
     Route: 048
  4. PRISTIQ EXTENDED-RELEASE [Suspect]
     Active Substance: DESVENLAFAXINE SUCCINATE
     Indication: DEPRESSION
     Dosage: 100 MG, 1X/DAY(ONE TABLET EVERY MORNING BY MOUTH)
     Route: 048
  5. ALLEGRA [Concomitant]
     Active Substance: FEXOFENADINE HYDROCHLORIDE
     Indication: HYPERSENSITIVITY
     Dosage: 180 MG, 1X/DAY(1 TABLET A DAY BY MOUTH)
     Route: 048
  6. BUPROPION HYDROCHLORIDE XL [Concomitant]
     Active Substance: BUPROPION HYDROCHLORIDE
     Indication: DEPRESSION
     Dosage: 150 MG, 3X/DAY(1 TABLET BY MOUTH THREE TIMES A DAY)
     Route: 048

REACTIONS (6)
  - Crying [Recovered/Resolved]
  - Depressed mood [Recovered/Resolved]
  - Nasopharyngitis [Unknown]
  - Loss of personal independence in daily activities [Recovered/Resolved]
  - Drug withdrawal syndrome [Recovered/Resolved]
  - Somnolence [Recovered/Resolved]
